FAERS Safety Report 8983941 (Version 1)
Quarter: 2012Q4

REPORT INFORMATION
  Report Type: Spontaneous
  Country: US (occurrence: None)
  Receive Date: 20121218
  Receipt Date: 20121218
  Transmission Date: 20130627
  Serious: No
  Sender: FDA-Public Use
  Company Number: None

PATIENT
  Age: 52 Year
  Weight: 68.04 kg

DRUGS (1)
  1. TESTIM [Suspect]
     Dosage: 1 5g tube 1 per day top
     Route: 061
     Dates: start: 20121212, end: 20121213

REACTIONS (2)
  - Product odour abnormal [None]
  - Nausea [None]
